FAERS Safety Report 21909313 (Version 2)
Quarter: 2023Q1

REPORT INFORMATION
  Report Type: Spontaneous
  Country: DE (occurrence: DE)
  Receive Date: 20230125
  Receipt Date: 20230221
  Transmission Date: 20230417
  Serious: Yes (Other)
  Sender: FDA-Public Use
  Company Number: DE-ROCHE-3243010

PATIENT
  Sex: Male

DRUGS (20)
  1. DEXAMETHASONE [Suspect]
     Active Substance: DEXAMETHASONE
     Indication: Diffuse large B-cell lymphoma
     Dosage: UNK,RITUXIMAB, LENALIDOMIDE, DEXAMETHASONE
     Route: 065
     Dates: start: 20220701, end: 20220710
  2. LENALIDOMIDE [Suspect]
     Active Substance: LENALIDOMIDE
     Indication: Diffuse large B-cell lymphoma
     Dosage: UNK,RITUXIMAB, LENALIDOMIDE, DEXAMETHASONE
     Route: 065
     Dates: start: 20220701, end: 20220710
  3. LENALIDOMIDE [Suspect]
     Active Substance: LENALIDOMIDE
     Dosage: UNK,TAFASITAMAB, LENALIDOMIDE
     Route: 065
     Dates: start: 20220830, end: 20220930
  4. BENDAMUSTINE HYDROCHLORIDE [Suspect]
     Active Substance: BENDAMUSTINE HYDROCHLORIDE
     Indication: Diffuse large B-cell lymphoma
     Dosage: UNK, POLA-BR
     Route: 065
     Dates: start: 20220501, end: 20220531
  5. MITOXANTRONE [Suspect]
     Active Substance: MITOXANTRONE HYDROCHLORIDE
     Indication: Diffuse large B-cell lymphoma
     Dosage: UNK,RITUXIMAB, CYTARABIN, MITOXANTRONE
     Route: 065
     Dates: start: 20220601, end: 20220630
  6. RITUXIMAB [Suspect]
     Active Substance: RITUXIMAB
     Indication: Diffuse large B-cell lymphoma
     Dosage: UNK,R-GEMOX
     Route: 065
     Dates: start: 20220201, end: 20220301
  7. RITUXIMAB [Suspect]
     Active Substance: RITUXIMAB
     Dosage: UNK,POLA-BR
     Route: 065
     Dates: start: 20220501, end: 20220531
  8. RITUXIMAB [Suspect]
     Active Substance: RITUXIMAB
     Dosage: RITUXIMAB, CYTARABIN, MITOXANTRONE
     Route: 065
     Dates: start: 20220601, end: 20220630
  9. RITUXIMAB [Suspect]
     Active Substance: RITUXIMAB
     Dosage: UNK,RITUXIMAB, LENALIDOMIDE, DEXAMETHASONE
     Route: 065
     Dates: start: 20220701, end: 20220710
  10. RITUXIMAB [Suspect]
     Active Substance: RITUXIMAB
     Dosage: UNK,R-CHOP
     Route: 065
     Dates: start: 20210901, end: 20220101
  11. CYTARABINE [Suspect]
     Active Substance: CYTARABINE
     Indication: Diffuse large B-cell lymphoma
     Dosage: UNK,RITUXIMAB, CYTARABIN, MITOXANTRONE
     Route: 065
     Dates: start: 20220601, end: 20220630
  12. GEMCITABINE HYDROCHLORIDE\OXALIPLATIN [Suspect]
     Active Substance: GEMCITABINE HYDROCHLORIDE\OXALIPLATIN
     Indication: Diffuse large B-cell lymphoma
     Dosage: UNK,R-GEMOX
     Route: 065
     Dates: start: 20220201, end: 20220301
  13. CYCLOPHOSPHAMIDE\DOXORUBICIN\PREDNISONE\VINCRISTINE [Suspect]
     Active Substance: CYCLOPHOSPHAMIDE\DOXORUBICIN\PREDNISONE\VINCRISTINE
     Indication: Diffuse large B-cell lymphoma
     Dosage: UNK,R-CHOP
     Route: 065
     Dates: start: 20210901, end: 20220101
  14. TAFASITAMAB-CXIX [Suspect]
     Active Substance: TAFASITAMAB-CXIX
     Indication: Diffuse large B-cell lymphoma
     Dosage: UNK,TAFASITAMAB, LENALIDOMIDE
     Route: 065
     Dates: start: 20220830, end: 20220930
  15. POLATUZUMAB VEDOTIN [Suspect]
     Active Substance: POLATUZUMAB VEDOTIN
     Indication: Diffuse large B-cell lymphoma
     Dosage: UNK,POLA-BR
     Route: 065
     Dates: start: 20220501, end: 20220531
  16. TAFASITAMAB [Suspect]
     Active Substance: TAFASITAMAB
     Indication: Diffuse large B-cell lymphoma
     Dosage: UNK., TAFASITAMAB, LENALIDOMIDE
     Route: 065
     Dates: start: 20220830, end: 20220930
  17. DOXORUBICIN [Suspect]
     Active Substance: DOXORUBICIN
     Indication: Diffuse large B-cell lymphoma
     Dosage: UNK, R-CHOP
     Route: 042
     Dates: start: 20210901, end: 20220101
  18. CYCLOPHOSPHAMIDE [Suspect]
     Active Substance: CYCLOPHOSPHAMIDE
     Indication: Diffuse large B-cell lymphoma
     Dosage: UNK, R-CHOP
     Route: 065
     Dates: start: 20210901, end: 20220101
  19. PREDNISONE [Suspect]
     Active Substance: PREDNISONE
     Indication: Diffuse large B-cell lymphoma
     Dosage: UNK
     Route: 065
     Dates: start: 20210901, end: 20220101
  20. VINCRISTINE [Suspect]
     Active Substance: VINCRISTINE
     Indication: Diffuse large B-cell lymphoma
     Dosage: UNK, R-CHOP
     Route: 042
     Dates: start: 20210901, end: 20220101

REACTIONS (1)
  - Lymphoma [Not Recovered/Not Resolved]
